FAERS Safety Report 16139208 (Version 1)
Quarter: 2019Q2

REPORT INFORMATION
  Report Type: Report from Study
  Country: US (occurrence: US)
  Receive Date: 20190401
  Receipt Date: 20190401
  Transmission Date: 20190711
  Serious: Yes (Other)
  Sender: FDA-Public Use
  Company Number: US-ROCHE-2288819

PATIENT
  Sex: Female
  Weight: 72.64 kg

DRUGS (2)
  1. BENADRYL [Concomitant]
     Active Substance: DIPHENHYDRAMINE HYDROCHLORIDE
  2. RITUXAN [Suspect]
     Active Substance: RITUXIMAB
     Indication: RELAPSING MULTIPLE SCLEROSIS
     Dosage: IV INFUSION ONCE A WEEK FOR 4 WEEKS ONCE A YEAR
     Route: 042
     Dates: start: 2016, end: 201802

REACTIONS (8)
  - Throat irritation [Unknown]
  - Intentional product use issue [Unknown]
  - Chest pain [Unknown]
  - Off label use [Unknown]
  - Multiple sclerosis [Unknown]
  - Ill-defined disorder [Unknown]
  - Oropharyngeal pain [Unknown]
  - Insomnia [Unknown]

NARRATIVE: CASE EVENT DATE: 2016
